FAERS Safety Report 17398133 (Version 4)
Quarter: 2020Q2

REPORT INFORMATION
  Report Type: Report from Study
  Country: IT (occurrence: IT)
  Receive Date: 20200210
  Receipt Date: 20200623
  Transmission Date: 20200713
  Serious: Yes (Hospitalization)
  Sender: FDA-Public Use
  Company Number: IT-CELGENEUS-ITA-20200200026

PATIENT
  Age: 39 Year
  Sex: Male
  Weight: 75 kg

DRUGS (9)
  1. HEPARIN [Concomitant]
     Active Substance: HEPARIN SODIUM
     Indication: POSTOPERATIVE WOUND INFECTION
     Route: 065
     Dates: end: 20200225
  2. IBUPROFEN. [Concomitant]
     Active Substance: IBUPROFEN
     Indication: POSTOPERATIVE WOUND INFECTION
     Route: 065
     Dates: end: 20200225
  3. LEVOXACIN [Concomitant]
     Active Substance: LEVOFLOXACIN
     Indication: POSTOPERATIVE WOUND INFECTION
     Route: 065
     Dates: end: 20200225
  4. LUSPATERCEPT. [Suspect]
     Active Substance: LUSPATERCEPT
     Indication: THALASSAEMIA BETA
     Dosage: 1 MILLIGRAM/KILOGRAM
     Route: 058
     Dates: start: 20191002, end: 20191002
  5. DEXAMETHASONE. [Concomitant]
     Active Substance: DEXAMETHASONE
     Indication: POSTOPERATIVE WOUND INFECTION
     Route: 065
     Dates: end: 20200225
  6. CODEINE [Concomitant]
     Active Substance: CODEINE
     Indication: POSTOPERATIVE WOUND INFECTION
     Route: 065
     Dates: end: 20200225
  7. PARACETAMOL [Concomitant]
     Active Substance: ACETAMINOPHEN
     Indication: POSTOPERATIVE WOUND INFECTION
     Route: 065
     Dates: end: 20200225
  8. OMEPRAZOLE. [Concomitant]
     Active Substance: OMEPRAZOLE
     Indication: POSTOPERATIVE WOUND INFECTION
     Route: 065
     Dates: end: 20200225
  9. LUSPATERCEPT. [Suspect]
     Active Substance: LUSPATERCEPT
     Dosage: 1.25 MILLIGRAM/KILOGRAM
     Route: 058
     Dates: start: 20200116, end: 20200116

REACTIONS (1)
  - Extramedullary haemopoiesis [Recovered/Resolved with Sequelae]

NARRATIVE: CASE EVENT DATE: 20200102
